FAERS Safety Report 11409265 (Version 1)
Quarter: 2015Q3

REPORT INFORMATION
  Report Type: Report from Study
  Country: US (occurrence: US)
  Receive Date: 20150824
  Receipt Date: 20150824
  Transmission Date: 20151125
  Serious: Yes (Other)
  Sender: FDA-Public Use
  Company Number: PHEH2015US016276

PATIENT
  Age: 49 Year
  Sex: Female
  Weight: 78.91 kg

DRUGS (1)
  1. GILENYA [Suspect]
     Active Substance: FINGOLIMOD HYDROCHLORIDE
     Indication: MULTIPLE SCLEROSIS
     Dosage: 0.5 MG, QD
     Route: 048
     Dates: start: 20141211

REACTIONS (7)
  - Joint swelling [Recovered/Resolved]
  - Temperature intolerance [Unknown]
  - Ocular hyperaemia [Unknown]
  - Fatigue [Unknown]
  - Feeling abnormal [Unknown]
  - Peripheral swelling [Recovered/Resolved]
  - Hypertension [Unknown]

NARRATIVE: CASE EVENT DATE: 2015
